FAERS Safety Report 4315128-4 (Version None)
Quarter: 2004Q1

REPORT INFORMATION
  Report Type: 
  Country: None (occurrence: None)
  Receive Date: 20040310
  Receipt Date: 20040217
  Transmission Date: 20041129
  Serious: Yes (Hospitalization)
  Sender: FDA-Public Use
  Company Number: US-GLAXOSMITHKLINE-A0498512A

PATIENT
  Age: 85 Year
  Sex: Female

DRUGS (11)
  1. COREG [Suspect]
     Indication: CARDIAC FAILURE CONGESTIVE
     Dosage: 12.5MG TWICE PER DAY
     Route: 048
     Dates: start: 20031220
  2. TIAZAC [Concomitant]
  3. LASIX [Concomitant]
  4. SANDIMMUNE [Concomitant]
  5. PREDNISONE [Concomitant]
  6. VALIUM [Concomitant]
  7. COMBIVENT [Concomitant]
  8. ZANTAC [Concomitant]
  9. FOLIC ACID [Concomitant]
  10. CENTRUM [Concomitant]
  11. IRON [Concomitant]

REACTIONS (3)
  - CARDIAC FAILURE [None]
  - HAEMORRHOIDAL HAEMORRHAGE [None]
  - PHLEBITIS [None]
